FAERS Safety Report 17666886 (Version 1)
Quarter: 2020Q2

REPORT INFORMATION
  Report Type: Spontaneous
  Country: US (occurrence: US)
  Receive Date: 20200414
  Receipt Date: 20200414
  Transmission Date: 20200713
  Serious: No
  Sender: FDA-Public Use
  Company Number: US-JAZZ-2020-US-001044

PATIENT

DRUGS (3)
  1. SUNOSI [Suspect]
     Active Substance: SOLRIAMFETOL
     Indication: SOMNOLENCE
     Dosage: UNK
     Route: 065
  2. SUNOSI [Suspect]
     Active Substance: SOLRIAMFETOL
     Indication: NARCOLEPSY
     Dosage: 150 MG
     Route: 065
  3. SUNOSI [Suspect]
     Active Substance: SOLRIAMFETOL
     Dosage: 75 MG
     Route: 065

REACTIONS (2)
  - Anxiety [Recovered/Resolved]
  - Drug ineffective [Unknown]
